FAERS Safety Report 8390218-8 (Version None)
Quarter: 2012Q1

REPORT INFORMATION
  Report Type: 
  Country: None (occurrence: None)
  Receive Date: 20120323
  Receipt Date: 20110331
  Transmission Date: 20120608
  Serious: Yes (Other)
  Sender: FDA-Public Use
  Company Number: 163-21880-11040214

PATIENT
  Age: 52 Year
  Sex: Male

DRUGS (3)
  1. REVLIMID [Suspect]
     Indication: CHRONIC LYMPHOCYTIC LEUKAEMIA
     Dosage: 10 MG, 1 IN 1 D, PO ,15-25MG, DAILY, PO,  5 MG, 1 IN 1 D, PO
     Route: 048
     Dates: start: 20081201
  2. REVLIMID [Suspect]
     Indication: CHRONIC LYMPHOCYTIC LEUKAEMIA
     Dosage: 10 MG, 1 IN 1 D, PO ,15-25MG, DAILY, PO,  5 MG, 1 IN 1 D, PO
     Route: 048
     Dates: start: 20100301
  3. REVLIMID [Suspect]
     Indication: CHRONIC LYMPHOCYTIC LEUKAEMIA
     Dosage: 10 MG, 1 IN 1 D, PO ,15-25MG, DAILY, PO,  5 MG, 1 IN 1 D, PO
     Route: 048
     Dates: start: 20090201

REACTIONS (1)
  - PLATELET COUNT DECREASED [None]
